FAERS Safety Report 20702560 (Version 7)
Quarter: 2022Q3

REPORT INFORMATION
  Report Type: Report from Study
  Country: AU (occurrence: AU)
  Receive Date: 20220412
  Receipt Date: 20220718
  Transmission Date: 20221027
  Serious: Yes (Hospitalization, Other)
  Sender: FDA-Public Use
  Company Number: AU-BIOGEN-2022BI01112661

PATIENT
  Age: 51 Year
  Sex: Female

DRUGS (5)
  1. TYSABRI [Suspect]
     Active Substance: NATALIZUMAB
     Indication: Relapsing-remitting multiple sclerosis
     Dosage: 300 MG/15 ML
     Route: 050
     Dates: start: 202203, end: 20220701
  2. TYSABRI [Suspect]
     Active Substance: NATALIZUMAB
     Dosage: 300 MG/15 ML
     Route: 050
     Dates: start: 20220401
  3. NALOXONE HYDROCHLORIDE\OXYCODONE HYDROCHLORIDE [Concomitant]
     Active Substance: NALOXONE HYDROCHLORIDE\OXYCODONE HYDROCHLORIDE
     Indication: Analgesic therapy
     Dosage: DOSE REDUCED
     Route: 050
     Dates: start: 202203
  4. OXAZEPAM [Concomitant]
     Active Substance: OXAZEPAM
     Indication: Muscle spasms
     Route: 050
  5. MAVENCLAD [Concomitant]
     Active Substance: CLADRIBINE
     Indication: Multiple sclerosis
     Dosage: FOR X2 CYCLES
     Route: 050
     Dates: start: 2019, end: 2020

REACTIONS (19)
  - Crohn^s disease [Recovered/Resolved]
  - Micturition urgency [Unknown]
  - Pollakiuria [Unknown]
  - Micturition disorder [Unknown]
  - Stress [Unknown]
  - Weight decreased [Unknown]
  - Mental fatigue [Recovered/Resolved]
  - Migraine [Recovered/Resolved]
  - Sensory disturbance [Recovered/Resolved]
  - Multiple sclerosis relapse [Unknown]
  - Muscular weakness [Not Recovered/Not Resolved]
  - Gait disturbance [Not Recovered/Not Resolved]
  - Toothache [Not Recovered/Not Resolved]
  - Seasonal allergy [Unknown]
  - Mobility decreased [Unknown]
  - Nausea [Recovered/Resolved]
  - Vomiting [Recovered/Resolved]
  - Headache [Recovered/Resolved]
  - Fatigue [Recovered/Resolved]

NARRATIVE: CASE EVENT DATE: 20220402
